FAERS Safety Report 13941153 (Version 2)
Quarter: 2017Q4

REPORT INFORMATION
  Report Type: Spontaneous
  Country: SE (occurrence: SE)
  Receive Date: 20170906
  Receipt Date: 20171016
  Transmission Date: 20180320
  Serious: Yes (Life-Threatening)
  Sender: FDA-Public Use
  Company Number: SE-009507513-1708SWE013611

PATIENT
  Age: 61 Year
  Sex: Female

DRUGS (15)
  1. FURIX [Concomitant]
     Active Substance: FUROSEMIDE
     Dates: start: 20170620
  2. MORPHINE [Concomitant]
     Active Substance: MORPHINE
     Dates: start: 20170427
  3. ALVEDON [Concomitant]
     Active Substance: ACETAMINOPHEN
     Dates: start: 20161206
  4. ONDANSETRON [Concomitant]
     Active Substance: ONDANSETRON
     Dates: start: 20170820
  5. OMEPRAZOLE. [Concomitant]
     Active Substance: OMEPRAZOLE
     Dates: start: 20170720
  6. DOLCONTIN (MORPHINE SULFATE) [Concomitant]
     Active Substance: MORPHINE SULFATE
     Dates: start: 20170502
  7. INNOHEP [Concomitant]
     Active Substance: TINZAPARIN SODIUM
     Dates: start: 20170620
  8. GABAPENTIN. [Concomitant]
     Active Substance: GABAPENTIN
  9. LAXOBERAL [Concomitant]
     Active Substance: SODIUM PICOSULFATE
     Dates: start: 20170720
  10. MOVENTIG [Concomitant]
     Active Substance: NALOXEGOL OXALATE
     Dates: start: 20170502
  11. SUMATRIPTAN. [Concomitant]
     Active Substance: SUMATRIPTAN
     Dates: start: 20090102
  12. KEYTRUDA [Suspect]
     Active Substance: PEMBROLIZUMAB
     Indication: BLADDER CANCER
     Dosage: 150 MG, Q3W (FOUR REGIMENS TOTALLY)
     Route: 042
     Dates: start: 20170608, end: 20170810
  13. PRIMPERAN [Concomitant]
     Active Substance: METOCLOPRAMIDE HYDROCHLORIDE
     Dates: start: 20170816
  14. DICLOFENAC [Concomitant]
     Active Substance: DICLOFENAC
     Dates: start: 20170720
  15. MOVICOL [Concomitant]
     Active Substance: POLYETHYLENE GLYCOL 3350\POTASSIUM CHLORIDE\SODIUM BICARBONATE\SODIUM CHLORIDE
     Dates: start: 20170208

REACTIONS (1)
  - Large intestine perforation [Not Recovered/Not Resolved]

NARRATIVE: CASE EVENT DATE: 20170820
